FAERS Safety Report 18072768 (Version 1)
Quarter: 2020Q3

REPORT INFORMATION
  Report Type: Spontaneous
  Country: US (occurrence: US)
  Receive Date: 20200727
  Receipt Date: 20200727
  Transmission Date: 20201103
  Serious: No
  Sender: FDA-Public Use
  Company Number: None

PATIENT
  Age: 70 Year
  Sex: Male
  Weight: 54.43 kg

DRUGS (2)
  1. REMDESIVIR 100MG [Suspect]
     Active Substance: REMDESIVIR
     Indication: SARS-COV-2 TEST POSITIVE
     Route: 042
     Dates: start: 20200721, end: 20200721
  2. REMDESIVIR 100MG [Suspect]
     Active Substance: REMDESIVIR
     Route: 042
     Dates: start: 20200722, end: 20200722

REACTIONS (1)
  - Death [None]

NARRATIVE: CASE EVENT DATE: 20200723
